FAERS Safety Report 6701747-4 (Version None)
Quarter: 2010Q2

REPORT INFORMATION
  Report Type: 
  Country: None (occurrence: None)
  Receive Date: 20100429
  Receipt Date: 20100422
  Transmission Date: 20101027
  Serious: Yes (Other)
  Sender: FDA-Public Use
  Company Number: PHHY2010CO26278

PATIENT
  Age: 93 Year
  Sex: Female

DRUGS (4)
  1. EXELON [Suspect]
     Indication: DEMENTIA
     Dosage: 1 DF, QD
     Route: 062
     Dates: start: 20100419, end: 20100420
  2. BUPROPION [Concomitant]
  3. MEMANTINE HCL [Concomitant]
  4. CLOPIDOGREL [Concomitant]

REACTIONS (2)
  - PRESYNCOPE [None]
  - SYNCOPE [None]
